FAERS Safety Report 22024925 (Version 1)
Quarter: 2023Q1

REPORT INFORMATION
  Report Type: Spontaneous
  Country: US (occurrence: None)
  Receive Date: 20230223
  Receipt Date: 20230223
  Transmission Date: 20230418
  Serious: No
  Sender: FDA-Public Use
  Company Number: US-ROCHE-3081188

PATIENT

DRUGS (11)
  1. XOLAIR [Suspect]
     Active Substance: OMALIZUMAB
     Indication: Product used for unknown indication
     Route: 058
  2. XOLAIR [Suspect]
     Active Substance: OMALIZUMAB
  3. XOLAIR [Suspect]
     Active Substance: OMALIZUMAB
  4. NUTROPIN [Suspect]
     Active Substance: SOMATROPIN
     Indication: Product used for unknown indication
     Dosage: 10 MG/2 ML
     Route: 058
  5. NUTROPIN [Suspect]
     Active Substance: SOMATROPIN
  6. NUTROPIN [Suspect]
     Active Substance: SOMATROPIN
     Dosage: 20 MG/2 ML
     Route: 058
  7. NUTROPIN [Suspect]
     Active Substance: SOMATROPIN
  8. PEGASYS [Suspect]
     Active Substance: PEGINTERFERON ALFA-2A
     Indication: Product used for unknown indication
     Dosage: 180 MCG/0.5 ML
     Route: 058
  9. PEGASYS [Suspect]
     Active Substance: PEGINTERFERON ALFA-2A
  10. PEGASYS [Suspect]
     Active Substance: PEGINTERFERON ALFA-2A
  11. XOLAIR [Suspect]
     Active Substance: OMALIZUMAB
     Indication: Product used for unknown indication
     Route: 065

REACTIONS (2)
  - Product storage error [Unknown]
  - No adverse event [Unknown]
